FAERS Safety Report 14102032 (Version 1)
Quarter: 2017Q4

REPORT INFORMATION
  Report Type: Report from Study
  Country: None (occurrence: US)
  Receive Date: 20171018
  Receipt Date: 20171018
  Transmission Date: 20180321
  Serious: Yes (Other)
  Sender: FDA-Public Use
  Company Number: US-ABBVIE-17K-163-2129862-00

PATIENT
  Age: 61 Year
  Sex: Male

DRUGS (1)
  1. HUMIRA [Suspect]
     Active Substance: ADALIMUMAB
     Indication: HIDRADENITIS
     Route: 058

REACTIONS (5)
  - Fall [Unknown]
  - Headache [Recovered/Resolved]
  - Swelling [Unknown]
  - Loss of consciousness [Unknown]
  - Head injury [Unknown]

NARRATIVE: CASE EVENT DATE: 201710
